FAERS Safety Report 9525646 (Version 1)
Quarter: 2013Q1

REPORT INFORMATION
  Report Type: Spontaneous
  Country: US (occurrence: None)
  Receive Date: 20130305
  Receipt Date: 20130305
  Transmission Date: 20140127
  Serious: Yes (Other)
  Sender: FDA-Public Use
  Company Number: 163-21880-12023036

PATIENT
  Age: 60 Year
  Sex: Male

DRUGS (27)
  1. REVLIMID (LENALIDOMIDE) (CAPSULES) [Suspect]
     Indication: PLASMA CELL MYELOMA
     Dosage: 10 MG, DAILY X 21/28 DAYS, PO
     Route: 048
     Dates: start: 20110222, end: 20120224
  2. REVLIMID (LENALIDOMIDE) (CAPSULES) [Suspect]
     Indication: AMYLOIDOSIS
     Dosage: 10 MG, DAILY X 21/28 DAYS, PO
     Route: 048
     Dates: start: 20110222, end: 20120224
  3. DEXAMETHASONE (DEXAMETHASONE) (UNKNOWN) [Concomitant]
  4. LASIX (FUROSEMIDE) (TABLETS) [Concomitant]
  5. MIDODRINE (MIDODRINE) (TABLETS) [Concomitant]
  6. POTASSIUM (POTASSIUM) (UNKNOWN) [Concomitant]
  7. MS CONTIN (MORPHINE SULFATE) (TABELTS) [Concomitant]
  8. ZOLPIDEM (ZOLPIDEM) (TABLETS) [Concomitant]
  9. OMEPRAZOLE (OMEPRAZOLE) (CAPSULE) [Concomitant]
  10. GABAPENTIN (GABAPENTIN) (UNKNOWN) (GABAPENTIN) [Concomitant]
  11. POTASSIUM CHLORIDE (POTASSIUM CHLORIDE) (TABLETS) [Concomitant]
  12. FINASTERIDE (FINASTERIDE) (TABLETS) [Concomitant]
  13. ASPIRIN (ACETYLSALICYLIC ACID) (TABLETS) [Concomitant]
  14. CITALOPRAM (CITALOPRAM) (TABLETS) [Concomitant]
  15. DOCUSATE SODIUM (DOCUSATE SODIUM) (CAPSULES) [Concomitant]
  16. SENNOSIDES-DOCUSATE SODIUM (COLOXYL WITH SENNA) (TABLETS)? [Concomitant]
  17. ONDANSETRON (ONDANSETRON) (TABLETS) [Concomitant]
  18. MAGNESIUM OXIDE (MAGNESIUM OXIDE) (CAPSULES)? [Concomitant]
  19. PROCHLORPERAZINE (PROCHLORPERAZINE) (TABLETS) [Concomitant]
  20. ERGOCALCIFEROL (ERGOCALCIFEROL) (CAPSULES)? [Concomitant]
  21. POLYETHYLENE GLYCOL 3350 (MACROGOL 3350) (POWDER) [Concomitant]
  22. SIMVASTATIN [Concomitant]
  23. HYDROMORPHONE (HYDROMORPHONE) (INJECTION) [Concomitant]
  24. MELPHALAN (MELPHALAN) (UNKNOWN) [Concomitant]
  25. FRAGMIN (HEPARIN-FRACTION, SODIUM SALT) (UNKNOWN) [Concomitant]
  26. ANTIBIOTICS (ANTIBIOTICS) (UNKNOWN) [Concomitant]
  27. WARFARIN (WARFARIN) (UNKNOWN) [Concomitant]

REACTIONS (4)
  - Compression fracture [None]
  - Bone marrow failure [None]
  - Pancytopenia [None]
  - Anaemia [None]
